FAERS Safety Report 9845778 (Version 3)
Quarter: 2014Q2

REPORT INFORMATION
  Report Type: Spontaneous
  Country: US (occurrence: US)
  Receive Date: 20140127
  Receipt Date: 20140417
  Transmission Date: 20141212
  Serious: No
  Sender: FDA-Public Use
  Company Number: US-PFIZER INC-2014024533

PATIENT
  Age: 79 Year
  Sex: Female

DRUGS (2)
  1. LYRICA [Suspect]
     Indication: NEUROPATHY PERIPHERAL
     Dosage: UNK
  2. LYRICA [Suspect]
     Indication: MUSCLE SPASMS

REACTIONS (2)
  - Muscular weakness [Unknown]
  - Pain [Unknown]
